FAERS Safety Report 14739590 (Version 1)
Quarter: 2018Q2

REPORT INFORMATION
  Report Type: Report from Study
  Country: None (occurrence: RO)
  Receive Date: 20180410
  Receipt Date: 20180410
  Transmission Date: 20180711
  Serious: Yes (Death)
  Sender: FDA-Public Use
  Company Number: RO-ABBVIE-18K-135-2317428-00

PATIENT
  Sex: Male

DRUGS (1)
  1. DUODOPA [Suspect]
     Active Substance: CARBIDOPA\LEVODOPA
     Indication: PARKINSON^S DISEASE
     Dosage: DM=13.00 DC=7.10 ED=2.00
     Route: 050
     Dates: start: 20141124, end: 20180401

REACTIONS (1)
  - Death [Fatal]
